FAERS Safety Report 9736995 (Version 2)
Quarter: 2013Q4

REPORT INFORMATION
  Report Type: Spontaneous
  Country: US (occurrence: US)
  Receive Date: 20131206
  Receipt Date: 20131206
  Transmission Date: 20140711
  Serious: No
  Sender: FDA-Public Use
  Company Number: US-GILEAD-2009-0023010

PATIENT
  Age: 76 Year
  Sex: Female
  Weight: 48.99 kg

DRUGS (13)
  1. LETAIRIS [Suspect]
     Indication: PULMONARY ARTERIAL HYPERTENSION
     Route: 048
     Dates: start: 20090622
  2. SPIRIVA [Concomitant]
  3. ZYRTEC [Concomitant]
  4. AMBIEN [Concomitant]
  5. RESTASIS [Concomitant]
  6. ASPIRIN [Concomitant]
  7. NEXIUM [Concomitant]
  8. GAVISCON [Concomitant]
  9. TUMS [Concomitant]
  10. POTASSIUM [Concomitant]
  11. MULTIVITAMINS [Concomitant]
  12. LAXATIVE [Concomitant]
  13. STOOL SOFTENER [Concomitant]

REACTIONS (2)
  - Dizziness [Not Recovered/Not Resolved]
  - Local swelling [Not Recovered/Not Resolved]
